FAERS Safety Report 24835198 (Version 1)
Quarter: 2025Q1

REPORT INFORMATION
  Report Type: Spontaneous
  Country: US (occurrence: US)
  Receive Date: 20250113
  Receipt Date: 20250113
  Transmission Date: 20250409
  Serious: Yes (Death)
  Sender: BAYER HEALTHCARE LLC
  Company Number: US-BAYER-2025A003251

PATIENT
  Age: 50 Year
  Sex: Male

DRUGS (2)
  1. ACETAMINOPHEN\CHLORPHENIRAMINE\DEXTROMETHORPHAN [Suspect]
     Active Substance: ACETAMINOPHEN\CHLORPHENIRAMINE\DEXTROMETHORPHAN
     Route: 048
  2. ALCOHOL [Suspect]
     Active Substance: ALCOHOL

REACTIONS (2)
  - Toxicity to various agents [Fatal]
  - Product use issue [Fatal]
